FAERS Safety Report 23922148 (Version 1)
Quarter: 2024Q2

REPORT INFORMATION
  Report Type: Spontaneous
  Country: US (occurrence: US)
  Receive Date: 20240531
  Receipt Date: 20240531
  Transmission Date: 20240715
  Serious: No
  Sender: FDA-Public Use
  Company Number: US-OPELLA-2024OHG018695

PATIENT
  Age: 55 Year
  Sex: Female

DRUGS (7)
  1. XYZAL [Suspect]
     Active Substance: LEVOCETIRIZINE DIHYDROCHLORIDE
     Indication: Product used for unknown indication
     Route: 065
  2. EPINEPHRINE [Concomitant]
     Active Substance: EPINEPHRINE
     Indication: Product used for unknown indication
     Route: 065
  3. BUSPAR [Concomitant]
     Active Substance: BUSPIRONE HYDROCHLORIDE
     Indication: Product used for unknown indication
     Route: 065
  4. Hydrochlorthiazide (Hydrodiuril) [Concomitant]
     Indication: Product used for unknown indication
     Route: 065
  5. Losartan (COZAR) [Concomitant]
     Indication: Product used for unknown indication
     Route: 065
  6. Spironolactone (ALDACTONE) [Concomitant]
     Indication: Product used for unknown indication
     Route: 065
  7. Trazodone (DESYREL) [Concomitant]
     Indication: Product used for unknown indication
     Route: 065

REACTIONS (2)
  - Drug ineffective [Unknown]
  - No adverse event [Unknown]
